FAERS Safety Report 9120608 (Version 2)
Quarter: 2013Q2

REPORT INFORMATION
  Report Type: Spontaneous
  Country: GB (occurrence: GB)
  Receive Date: 20130226
  Receipt Date: 20130401
  Transmission Date: 20140414
  Serious: Yes (Other)
  Sender: FDA-Public Use
  Company Number: GB-UCBSA-075677

PATIENT
  Age: 32 Year
  Sex: Male
  Weight: 80 kg

DRUGS (6)
  1. VIMPAT [Suspect]
     Indication: EPILEPSY
     Dosage: REDUCED DOSE TO 200 BD, TOTAL DAILY DOSE: 400
     Route: 048
     Dates: start: 201203
  2. VIMPAT [Suspect]
     Indication: EPILEPSY
     Dosage: UNKNOWN DOSE
     Route: 048
  3. TEGRETAL [Suspect]
     Route: 048
     Dates: start: 2004
  4. TEGRETAL [Suspect]
     Dosage: REDUCED DOSE
     Route: 048
  5. PREGABALIN [Concomitant]
     Indication: EPILEPSY
     Dosage: 350 BD, TOTAL DAILY DOSE: 700
     Route: 048
     Dates: start: 200512
  6. CLOBAZAM [Concomitant]
     Dosage: 10 TD, TOTAL DAILY DOSE: 30, AS REQUIRED
     Route: 048
     Dates: start: 2006

REACTIONS (3)
  - Convulsion [Not Recovered/Not Resolved]
  - Excoriation [Unknown]
  - Somnolence [Recovering/Resolving]
